FAERS Safety Report 20523168 (Version 1)
Quarter: 2022Q1

REPORT INFORMATION
  Report Type: Spontaneous
  Country: US (occurrence: US)
  Receive Date: 20220227
  Receipt Date: 20220227
  Transmission Date: 20220424
  Serious: No
  Sender: FDA-Public Use
  Company Number: US-ELI_LILLY_AND_COMPANY-US202202010931

PATIENT
  Sex: Male

DRUGS (2)
  1. BASAGLAR [Suspect]
     Active Substance: INSULIN GLARGINE
     Indication: Blood glucose increased
     Dosage: 28 U, EACH EVENING
     Route: 065
  2. BASAGLAR [Suspect]
     Active Substance: INSULIN GLARGINE
     Dosage: 50 U, SEVERAL TIMES A DAY
     Route: 065

REACTIONS (2)
  - Blood glucose increased [Unknown]
  - Drug ineffective [Unknown]
